FAERS Safety Report 13891525 (Version 6)
Quarter: 2019Q1

REPORT INFORMATION
  Report Type: Spontaneous
  Country: ES (occurrence: ES)
  Receive Date: 20170822
  Receipt Date: 20190311
  Transmission Date: 20190417
  Serious: Yes (Hospitalization, Congenital Anomaly, Other)
  Sender: FDA-Public Use
  Company Number: ES-ROCHE-1975765

PATIENT
  Age: 33 Week
  Sex: Male

DRUGS (7)
  1. DOXORUBICIN [Suspect]
     Active Substance: DOXORUBICIN
     Indication: PRODUCT USED FOR UNKNOWN INDICATION
     Dosage: MOTHER^S DOSE: 600 MG/M2
     Route: 064
     Dates: start: 20161123, end: 20170125
  2. HERCEPTIN [Suspect]
     Active Substance: TRASTUZUMAB
     Dosage: MOTHER^S MAINTAINANCE DOSE: 6 MG/KG
     Route: 064
  3. PERJETA [Suspect]
     Active Substance: PERTUZUMAB
     Indication: PRODUCT USED FOR UNKNOWN INDICATION
     Dosage: MAOTHER^S LOADING DOSE: 840MG
     Route: 064
     Dates: start: 201702
  4. PERJETA [Suspect]
     Active Substance: PERTUZUMAB
     Dosage: MOTHER^S MAINTAINANCE DOSE: 420 MG
     Route: 064
     Dates: end: 201704
  5. TAXOL [Suspect]
     Active Substance: PACLITAXEL
     Indication: PRODUCT USED FOR UNKNOWN INDICATION
     Dosage: STRENGTH: 6 MG/ML?MOTHER^S DOSE; 80 MG/M2
     Route: 064
     Dates: start: 20170125, end: 201703
  6. HERCEPTIN [Suspect]
     Active Substance: TRASTUZUMAB
     Indication: PRODUCT USED FOR UNKNOWN INDICATION
     Dosage: MOTHER^S LOADING DOSE: 8 MG/KG
     Route: 064
     Dates: start: 201702, end: 201704
  7. CICLOFOSFAMIDA [Suspect]
     Active Substance: CYCLOPHOSPHAMIDE
     Indication: PRODUCT USED FOR UNKNOWN INDICATION
     Route: 064
     Dates: start: 20161123, end: 20170125

REACTIONS (10)
  - Oligohydramnios [Recovered/Resolved]
  - Foetal exposure during pregnancy [Unknown]
  - Cardiomyopathy [Unknown]
  - Pulmonary hypoplasia [Recovering/Resolving]
  - Tidal volume decreased [Recovered/Resolved]
  - Acute kidney injury [Recovering/Resolving]
  - Proteinuria [Unknown]
  - Electrolyte imbalance [Unknown]
  - Right ventricular hypertrophy [Recovered/Resolved]
  - Hypertension [Unknown]

NARRATIVE: CASE EVENT DATE: 20170420
